FAERS Safety Report 13706286 (Version 1)
Quarter: 2017Q2

REPORT INFORMATION
  Report Type: Spontaneous
  Country: US (occurrence: US)
  Receive Date: 20170630
  Receipt Date: 20170630
  Transmission Date: 20170830
  Serious: No
  Sender: FDA-Public Use
  Company Number: US-SA-2017SA016696

PATIENT
  Age: 22 Year
  Sex: Male

DRUGS (3)
  1. PRIFTIN [Suspect]
     Active Substance: RIFAPENTINE
     Indication: DRUG INTERACTION
     Route: 065
     Dates: start: 20160624, end: 20160712
  2. DOLUTEGRAVIR [Suspect]
     Active Substance: DOLUTEGRAVIR
     Indication: DRUG INTERACTION
     Route: 065
  3. ISONIAZID. [Suspect]
     Active Substance: ISONIAZID
     Indication: DRUG INTERACTION
     Route: 065
     Dates: start: 20160624, end: 20160712

REACTIONS (7)
  - Nausea [Recovered/Resolved]
  - Influenza like illness [Recovered/Resolved]
  - Vomiting [Recovered/Resolved]
  - Liver function test increased [Recovered/Resolved]
  - Pyrexia [Recovered/Resolved]
  - Aspartate aminotransferase increased [Recovered/Resolved]
  - Alanine aminotransferase increased [Recovered/Resolved]

NARRATIVE: CASE EVENT DATE: 201607
